FAERS Safety Report 4277056-2 (Version None)
Quarter: 2004Q1

REPORT INFORMATION
  Report Type: 
  Country: None (occurrence: None)
  Receive Date: 20040120
  Receipt Date: 20040113
  Transmission Date: 20041129
  Serious: Yes (Other)
  Sender: FDA-Public Use
  Company Number: PTWYE506613JAN04

PATIENT
  Age: 42 Year
  Sex: Female

DRUGS (4)
  1. EFFEXOR XR [Suspect]
     Route: 048
     Dates: start: 20040101, end: 20040101
  2. EFFEXOR XR [Suspect]
     Route: 048
     Dates: start: 20040112, end: 20040112
  3. APROVEL [Concomitant]
  4. DIAZEPAM [Concomitant]

REACTIONS (5)
  - DIARRHOEA [None]
  - FEELING ABNORMAL [None]
  - NAUSEA [None]
  - SENSATION OF HEAVINESS [None]
  - VOMITING [None]
